FAERS Safety Report 15795077 (Version 1)
Quarter: 2019Q1

REPORT INFORMATION
  Report Type: Spontaneous
  Country: US (occurrence: US)
  Receive Date: 20190107
  Receipt Date: 20190107
  Transmission Date: 20190417
  Serious: Yes (Hospitalization)
  Sender: FDA-Public Use
  Company Number: None

PATIENT
  Sex: Female

DRUGS (7)
  1. CEPHALEXIN. [Concomitant]
     Active Substance: CEPHALEXIN
  2. FEROSUL [Concomitant]
  3. EPCLUSA [Suspect]
     Active Substance: SOFOSBUVIR\VELPATASVIR
     Indication: HEPATITIS VIRAL
     Route: 048
     Dates: start: 20181130
  4. RANITIDINE. [Concomitant]
     Active Substance: RANITIDINE
  5. ACYCLOVIR. [Concomitant]
     Active Substance: ACYCLOVIR
  6. RIBAVIRIN. [Suspect]
     Active Substance: RIBAVIRIN
     Indication: HEPATITIS VIRAL
     Route: 048
     Dates: start: 20181130
  7. SPIRONOLACT [Concomitant]
     Active Substance: SPIRONOLACTONE

REACTIONS (1)
  - Malaise [None]
